FAERS Safety Report 10245329 (Version 1)
Quarter: 2014Q2

REPORT INFORMATION
  Report Type: Report from Study
  Country: US (occurrence: US)
  Receive Date: 20140618
  Receipt Date: 20140618
  Transmission Date: 20141212
  Serious: Yes (Hospitalization)
  Sender: FDA-Public Use
  Company Number: US-IPSEN BIOPHARMACEUTICALS, INC.-2014-2973

PATIENT
  Age: 46 Year
  Sex: Female
  Weight: 100 kg

DRUGS (3)
  1. SOMATULINE DEPOT INJECTION (120MG) [Suspect]
     Indication: ACROMEGALY
     Dosage: 120MG
     Route: 058
  2. SOMATULINE DEPOT INJECTION (120MG) [Suspect]
     Dosage: 90MG
     Route: 058
  3. BOTOX [Concomitant]
     Indication: MIGRAINE
     Dosage: NOT REPORTED
     Route: 065

REACTIONS (2)
  - Ovarian cyst [Recovered/Resolved]
  - Ovarian cyst [Unknown]
